FAERS Safety Report 13694386 (Version 1)
Quarter: 2017Q2

REPORT INFORMATION
  Report Type: Spontaneous
  Country: SE (occurrence: SE)
  Receive Date: 20170627
  Receipt Date: 20170627
  Transmission Date: 20170830
  Serious: Yes (Other)
  Sender: FDA-Public Use
  Company Number: SE-PFIZER INC-2017269987

PATIENT
  Age: 68 Year
  Sex: Female

DRUGS (2)
  1. NUVARING [Suspect]
     Active Substance: ETHINYL ESTRADIOL\ETONOGESTREL
     Route: 067
  2. OESTRING [Suspect]
     Active Substance: ESTRADIOL

REACTIONS (2)
  - Drug dispensing error [Unknown]
  - Deep vein thrombosis [Unknown]
